FAERS Safety Report 4421786-6 (Version None)
Quarter: 2004Q3

REPORT INFORMATION
  Report Type: 
  Country: None (occurrence: None)
  Receive Date: 20040806
  Receipt Date: 20040720
  Transmission Date: 20050211
  Serious: Yes (Hospitalization, Other)
  Sender: FDA-Public Use
  Company Number: USA040671408

PATIENT
  Age: 59 Year
  Sex: Male
  Weight: 95 kg

DRUGS (4)
  1. HUMULIN 70/30 [Suspect]
     Indication: DIABETES MELLITUS
     Dosage: 35 U/2 DAY
     Dates: start: 20020101, end: 20040624
  2. HUMULIN N [Suspect]
     Indication: DIABETES MELLITUS
     Dates: start: 20040629
  3. LASIX [Concomitant]
  4. GLYBURIDE AND METFORMIN HCL [Concomitant]

REACTIONS (12)
  - ANOREXIA [None]
  - ASTHENIA [None]
  - BLOOD GLUCOSE INCREASED [None]
  - CARDIAC DISORDER [None]
  - MOBILITY DECREASED [None]
  - MYOCARDIAL INFARCTION [None]
  - OEDEMA PERIPHERAL [None]
  - PANCREATIC DISORDER [None]
  - PHARMACEUTICAL PRODUCT COMPLAINT [None]
  - RENAL DISORDER [None]
  - SWELLING FACE [None]
  - THYROID DISORDER [None]
